FAERS Safety Report 9463211 (Version 2)
Quarter: 2015Q2

REPORT INFORMATION
  Report Type: Spontaneous
  Country: RU (occurrence: RU)
  Receive Date: 20130818
  Receipt Date: 20150505
  Transmission Date: 20150821
  Serious: Yes (Death, Hospitalization, Other)
  Sender: FDA-Public Use
  Company Number: PHHY2013RU087554

PATIENT
  Age: 6 Month
  Sex: Male

DRUGS (8)
  1. LEUCOVORIN [Concomitant]
     Active Substance: LEUCOVORIN
     Dosage: 233 MG/M2
     Route: 065
  2. CARBOPLATIN. [Concomitant]
     Active Substance: CARBOPLATIN
     Indication: PRIMITIVE NEUROECTODERMAL TUMOUR
     Dosage: 25 MG/KG, QD
     Route: 065
  3. CYCLOPHOSPHAMIDE. [Concomitant]
     Active Substance: CYCLOPHOSPHAMIDE
     Indication: PRIMITIVE NEUROECTODERMAL TUMOUR
     Dosage: 65 MG/KG, UNK
     Route: 065
  4. LEUCOVORIN [Concomitant]
     Active Substance: LEUCOVORIN
     Dosage: 15 MG/M2
     Route: 065
  5. LEUCOVORIN [Concomitant]
     Active Substance: LEUCOVORIN
     Indication: PRIMITIVE NEUROECTODERMAL TUMOUR
     Dosage: 50 MG/M2
     Route: 065
  6. METHOTREXATE [Suspect]
     Active Substance: METHOTREXATE
     Indication: PRIMITIVE NEUROECTODERMAL TUMOUR
     Dosage: 5 G/M2
     Route: 041
  7. VINCRISTINE [Concomitant]
     Active Substance: VINCRISTINE
     Indication: PRIMITIVE NEUROECTODERMAL TUMOUR
     Dosage: 0.005 MG/KG, QD
     Route: 065
  8. VEPESID [Concomitant]
     Active Substance: ETOPOSIDE
     Indication: PRIMITIVE NEUROECTODERMAL TUMOUR
     Dosage: 2 MG/KG, QD
     Route: 065

REACTIONS (9)
  - Mucosal inflammation [Not Recovered/Not Resolved]
  - Erythema [Not Recovered/Not Resolved]
  - Pancytopenia [Not Recovered/Not Resolved]
  - Drug level increased [Unknown]
  - Cardiopulmonary failure [Fatal]
  - General physical health deterioration [Unknown]
  - Melaena [Not Recovered/Not Resolved]
  - Vomiting [Not Recovered/Not Resolved]
  - Mouth haemorrhage [Not Recovered/Not Resolved]
